FAERS Safety Report 20000026 (Version 1)
Quarter: 2021Q4

REPORT INFORMATION
  Report Type: Other
  Country: FR (occurrence: FR)
  Receive Date: 20211027
  Receipt Date: 20211027
  Transmission Date: 20220303
  Serious: Yes (Hospitalization)
  Sender: FDA-Public Use
  Company Number: FR-BAUSCH-BL-2021-015935

PATIENT

DRUGS (6)
  1. RAMIPRIL [Interacting]
     Active Substance: RAMIPRIL
     Indication: Sinus node dysfunction
     Dosage: 5 MILLIGRAM
     Route: 048
  2. CARTEOLOL HYDROCHLORIDE [Interacting]
     Active Substance: CARTEOLOL HYDROCHLORIDE
     Indication: Hypertonia
     Dosage: UNK
     Route: 065
  3. FLECAINIDE [Interacting]
     Active Substance: FLECAINIDE
     Indication: Sinus node dysfunction
     Dosage: UNK
     Route: 048
  4. RILMENIDINE PHOSPHATE [Interacting]
     Active Substance: RILMENIDINE PHOSPHATE
     Indication: Sinus node dysfunction
     Dosage: UNK
     Route: 048
  5. FUROSEMIDE [Interacting]
     Active Substance: FUROSEMIDE
     Indication: Sinus node dysfunction
     Dosage: 40 MILLIGRAM
     Route: 048
  6. KARDEGIC [Interacting]
     Active Substance: ASPIRIN DL-LYSINE
     Indication: Sinus node dysfunction
     Dosage: 300 MILLIGRAM
     Route: 048

REACTIONS (2)
  - Bradycardia [Unknown]
  - Drug interaction [Unknown]

NARRATIVE: CASE EVENT DATE: 20080101
